FAERS Safety Report 5073535-9 (Version None)
Quarter: 2006Q3

REPORT INFORMATION
  Report Type: 
  Country: None (occurrence: None)
  Receive Date: 20060717
  Receipt Date: 20051220
  Transmission Date: 20061208
  Serious: No
  Sender: FDA-Public Use
  Company Number: 2005002430

PATIENT
  Age: 71 Year
  Sex: Female

DRUGS (7)
  1. TARCEVA [Suspect]
     Indication: LUNG NEOPLASM MALIGNANT
     Dosage: 150 MG (QD), ORAL
     Route: 048
     Dates: start: 20050801
  2. FUROSEMIDE [Concomitant]
  3. ALLOPURINOL [Concomitant]
  4. LEVOTHYROXINE SODIUM [Concomitant]
  5. PROPRANOLOL [Concomitant]
  6. POTASSIUM CHLORIDE [Concomitant]
  7. VITORIN [Concomitant]

REACTIONS (4)
  - DIARRHOEA [None]
  - DRY SKIN [None]
  - HAIR GROWTH ABNORMAL [None]
  - HAIR TEXTURE ABNORMAL [None]
